FAERS Safety Report 16452865 (Version 2)
Quarter: 2019Q2

REPORT INFORMATION
  Report Type: Spontaneous
  Country: US (occurrence: US)
  Receive Date: 20190619
  Receipt Date: 20190625
  Transmission Date: 20190711
  Serious: No
  Sender: FDA-Public Use
  Company Number: US-SA-2019SA158658

PATIENT
  Age: 44 Year
  Sex: Female

DRUGS (9)
  1. FISH OIL [Concomitant]
     Active Substance: FISH OIL
  2. FOLIC ACID. [Concomitant]
     Active Substance: FOLIC ACID
  3. CALCIUM D3 [Concomitant]
     Active Substance: CALCIUM\CHOLECALCIFEROL
  4. METHOTREXATE. [Concomitant]
     Active Substance: METHOTREXATE
  5. MULTIVITAMINS [VITAMINS NOS] [Concomitant]
     Active Substance: VITAMINS
  6. MINOCYCLINE [Concomitant]
     Active Substance: MINOCYCLINE\MINOCYCLINE HYDROCHLORIDE
  7. MUCINEX [Concomitant]
     Active Substance: GUAIFENESIN
  8. FEVERFEW [HERBAL EXTRACT NOS] [Concomitant]
  9. KEVZARA [Suspect]
     Active Substance: SARILUMAB
     Dosage: 200 MG, QOW
     Route: 058
     Dates: start: 20190509

REACTIONS (2)
  - Unevaluable event [Unknown]
  - Drug ineffective [Recovered/Resolved]
